FAERS Safety Report 24425866 (Version 1)
Quarter: 2024Q4

REPORT INFORMATION
  Report Type: Spontaneous
  Country: KR (occurrence: KR)
  Receive Date: 20241011
  Receipt Date: 20241011
  Transmission Date: 20250114
  Serious: Yes (Disabling, Other)
  Sender: SANOFI AVENTIS
  Company Number: KR-SANOFI-02211758

PATIENT
  Age: 73 Year
  Sex: Male
  Weight: 84 kg

DRUGS (4)
  1. APIDRA [Suspect]
     Active Substance: INSULIN GLULISINE
     Indication: Diabetes mellitus
     Dosage: UNK
  2. APIDRA [Suspect]
     Active Substance: INSULIN GLULISINE
     Dosage: 80 U, TID (BEFORE MEALS)
     Route: 065
     Dates: start: 202408, end: 2024
  3. APIDRA [Suspect]
     Active Substance: INSULIN GLULISINE
     Dosage: 20?30 UNITS (8?9 INJECTIONS PER DAY)
     Route: 065
     Dates: start: 2024
  4. TOUJEO [Suspect]
     Active Substance: INSULIN GLARGINE
     Indication: Diabetes mellitus
     Dosage: 80 U, QD
     Route: 065
     Dates: start: 202409

REACTIONS (14)
  - Paralysis [Not Recovered/Not Resolved]
  - Diabetes mellitus inadequate control [Not Recovered/Not Resolved]
  - Drug ineffective [Not Recovered/Not Resolved]
  - Intentional product misuse [Unknown]
  - Dizziness [Unknown]
  - Poor peripheral circulation [Unknown]
  - Pain in extremity [Unknown]
  - Hypoaesthesia [Unknown]
  - Dysuria [Unknown]
  - Dyschezia [Unknown]
  - Ligament sprain [Unknown]
  - Weight increased [Not Recovered/Not Resolved]
  - Pruritus [Unknown]
  - Hypoglycaemia [Unknown]

NARRATIVE: CASE EVENT DATE: 20240101
